FAERS Safety Report 15851800 (Version 1)
Quarter: 2019Q1

REPORT INFORMATION
  Report Type: Spontaneous
  Country: JP (occurrence: JP)
  Receive Date: 20190122
  Receipt Date: 20190122
  Transmission Date: 20190417
  Serious: Yes (Hospitalization)
  Sender: FDA-Public Use
  Company Number: JP-CONCORDIA PHARMACEUTICALS INC.-E2B_00017978

PATIENT
  Age: 83 Year
  Sex: Female

DRUGS (2)
  1. ZONISAMIDE CAPSULE [Suspect]
     Active Substance: ZONISAMIDE
     Indication: DEMENTIA WITH LEWY BODIES
     Route: 048
  2. LEVODOPA [Concomitant]
     Active Substance: LEVODOPA
     Indication: DEMENTIA WITH LEWY BODIES

REACTIONS (2)
  - Persecutory delusion [Not Recovered/Not Resolved]
  - Product use in unapproved indication [Unknown]
